FAERS Safety Report 16792256 (Version 1)
Quarter: 2019Q3

REPORT INFORMATION
  Report Type: Spontaneous
  Country: US (occurrence: US)
  Receive Date: 20190910
  Receipt Date: 20190910
  Transmission Date: 20191005
  Serious: No
  Sender: FDA-Public Use
  Company Number: US-ROCHE-2201146

PATIENT
  Sex: Female

DRUGS (1)
  1. PEGASYS [Suspect]
     Active Substance: PEGINTERFERON ALFA-2A
     Indication: PRODUCT USED FOR UNKNOWN INDICATION
     Dosage: FREQUENCY: OTHER; ONGOING: YES  INJ 180MCG/ML
     Route: 058
     Dates: start: 20180810

REACTIONS (2)
  - Multiple use of single-use product [Unknown]
  - No adverse event [Unknown]
